FAERS Safety Report 23393894 (Version 3)
Quarter: 2024Q1

REPORT INFORMATION
  Report Type: Spontaneous
  Country: DE (occurrence: DE)
  Receive Date: 20240111
  Receipt Date: 20240216
  Transmission Date: 20240409
  Serious: Yes (Hospitalization)
  Sender: FDA-Public Use
  Company Number: DE-JNJFOC-20231017155

PATIENT
  Age: 6 Decade
  Sex: Male
  Weight: 84 kg

DRUGS (4)
  1. DEXAMETHASONE [Suspect]
     Active Substance: DEXAMETHASONE
     Indication: Plasma cell myeloma
     Dosage: 20 MG (DATE OF LAST DOSE: 09-SEP-2023)
     Route: 065
     Dates: start: 20210901, end: 20230909
  2. DARATUMUMAB [Suspect]
     Active Substance: DARATUMUMAB
     Dosage: 1800 MG
     Route: 065
     Dates: start: 20230907
  3. DARATUMUMAB [Suspect]
     Active Substance: DARATUMUMAB
     Indication: Plasma cell myeloma
     Dosage: 1800 MG (DATE OF LAST DOSE; 07-SEP-2023)
     Route: 058
     Dates: start: 20220324, end: 20230907
  4. LENALIDOMIDE [Suspect]
     Active Substance: LENALIDOMIDE
     Indication: Plasma cell myeloma
     Dosage: 15 MG (DATE OF LAST DOSE:04-OCT-2023)
     Route: 065
     Dates: end: 20231004

REACTIONS (3)
  - Pneumocystis jirovecii pneumonia [Not Recovered/Not Resolved]
  - Pulmonary embolism [Not Recovered/Not Resolved]
  - Pneumonia [Not Recovered/Not Resolved]

NARRATIVE: CASE EVENT DATE: 20231005
